FAERS Safety Report 21781604 (Version 1)
Quarter: 2022Q4

REPORT INFORMATION
  Report Type: Other
  Country: EG (occurrence: EG)
  Receive Date: 20221227
  Receipt Date: 20221227
  Transmission Date: 20230113
  Serious: Yes (Other)
  Sender: FDA-Public Use
  Company Number: EG-002147023-NVSC2022EG216732

PATIENT
  Age: 29 Year
  Sex: Female

DRUGS (2)
  1. XOLAIR [Suspect]
     Active Substance: OMALIZUMAB
     Indication: Urticaria
     Dosage: 1 DOSAGE FORM, QMO (ONE XOLAIR INJECTION PER MONTH)
     Route: 065
     Dates: start: 20211109, end: 20220509
  2. XOLAIR [Suspect]
     Active Substance: OMALIZUMAB
     Dosage: 2 DOSAGE FORM, QMO (2 XOLAIR INJECTIONS)
     Route: 065
     Dates: start: 202207

REACTIONS (10)
  - Weight increased [Recovering/Resolving]
  - Lethargy [Recovering/Resolving]
  - Limb discomfort [Recovering/Resolving]
  - Neuralgia [Recovering/Resolving]
  - Fatigue [Recovering/Resolving]
  - Pain in extremity [Recovering/Resolving]
  - Insomnia [Recovered/Resolved]
  - Urticaria [Recovered/Resolved]
  - Gastrointestinal disorder [Recovered/Resolved]
  - Inappropriate schedule of product administration [Unknown]

NARRATIVE: CASE EVENT DATE: 20211109
